FAERS Safety Report 4785264-7 (Version None)
Quarter: 2005Q3

REPORT INFORMATION
  Report Type: 
  Country: None (occurrence: None)
  Receive Date: 20050929
  Receipt Date: 20050914
  Transmission Date: 20060218
  Serious: Yes (Hospitalization, Other)
  Sender: FDA-Public Use
  Company Number: GBR-2005-0001885

PATIENT
  Age: 76 Year
  Sex: Male
  Weight: 98 kg

DRUGS (13)
  1. DIHYDROCOEINE BITARTRATE (DIHYDROCODEINE BITARTRATE) [Suspect]
     Indication: PAIN
     Dosage: 60 MG, TID, ORAL
     Route: 048
     Dates: start: 20050819, end: 20050823
  2. ACETYLSALICYLIC ACID(ACETYLSALICYLIC ACID) CR TAB DAILY [Suspect]
     Indication: PROPHYLAXIS
     Dosage: 75 MG, DAILY, ORAL
     Route: 048
     Dates: start: 20030201, end: 20050824
  3. CORACTEN [Concomitant]
  4. ENALAPRIL MALEATE [Concomitant]
  5. LOSARTAN POTASSIUM [Concomitant]
  6. GLICLAZIDE (GLICLAZIDE) [Concomitant]
  7. ATORVASTATIN CALCIUM [Concomitant]
  8. CARBAMAZEPINE [Concomitant]
  9. DOXAZOSIN (DOXAZOSIN) [Concomitant]
  10. SERETIDE (GLUTICASONE PROPIONATE, SALMETEROL) [Concomitant]
  11. BENDROFLUMETHIAZIDE (BENDROFLUMETHIAZIDE) [Concomitant]
  12. INSULIN DETEMIR (INSULIN DETEMIR) [Concomitant]
  13. OMEPRAZOLE [Concomitant]

REACTIONS (8)
  - BLOOD CREATININE INCREASED [None]
  - BLOOD UREA INCREASED [None]
  - CONSTIPATION [None]
  - DYSURIA [None]
  - HAEMATEMESIS [None]
  - HAEMOGLOBIN INCREASED [None]
  - OCCULT BLOOD POSITIVE [None]
  - URINARY RETENTION [None]
